FAERS Safety Report 15821501 (Version 1)
Quarter: 2019Q1

REPORT INFORMATION
  Report Type: Spontaneous
  Country: US (occurrence: US)
  Receive Date: 20190114
  Receipt Date: 20190114
  Transmission Date: 20190417
  Serious: Yes (Death, Hospitalization)
  Sender: FDA-Public Use
  Company Number: US-PFIZER INC-2019010224

PATIENT
  Age: 63 Year
  Sex: Male

DRUGS (3)
  1. PREGABALIN. [Suspect]
     Active Substance: PREGABALIN
     Indication: SEIZURE
  2. TOPIRAMATE. [Suspect]
     Active Substance: TOPIRAMATE
     Indication: SEIZURE
     Dosage: UNK
     Route: 048
  3. PREGABALIN. [Suspect]
     Active Substance: PREGABALIN
     Indication: INSOMNIA
     Dosage: UNK
     Route: 048

REACTIONS (5)
  - Cardiac arrest [Fatal]
  - Respiratory arrest [Fatal]
  - Toxicity to various agents [Fatal]
  - Death [Fatal]
  - Intentional product misuse [Fatal]

NARRATIVE: CASE EVENT DATE: 2017
